FAERS Safety Report 9652002 (Version 1)
Quarter: 2013Q4

REPORT INFORMATION
  Report Type: Spontaneous
  Country: US (occurrence: None)
  Receive Date: 20131025
  Receipt Date: 20131025
  Transmission Date: 20140711
  Serious: Yes (Other)
  Sender: FDA-Public Use
  Company Number: SYM-2013-11859

PATIENT
  Age: 28 Year
  Sex: Female

DRUGS (4)
  1. METRONIDAZOLE [Suspect]
     Indication: HELICOBACTER INFECTION
     Route: 048
     Dates: start: 20130926, end: 20130929
  2. CLARITYN [Concomitant]
  3. OMEPRAZOLE (OMEPRAZOLE) (OMEPRAZOLE) [Concomitant]
  4. AMOXCILLIN (AMOXICILLIN) (AMOXICILLIN) [Concomitant]

REACTIONS (7)
  - Fatigue [None]
  - Malaise [None]
  - Somnolence [None]
  - Headache [None]
  - Depression [None]
  - Confusional state [None]
  - Dysgeusia [None]
